FAERS Safety Report 11915526 (Version 1)
Quarter: 2016Q1

REPORT INFORMATION
  Report Type: Spontaneous
  Country: US (occurrence: None)
  Receive Date: 20160113
  Receipt Date: 20160113
  Transmission Date: 20160526
  Serious: Yes (Disabling, Other)
  Sender: FDA-Public Use
  Company Number: None

PATIENT
  Age: 62 Year
  Sex: Female
  Weight: 49.9 kg

DRUGS (4)
  1. MOXIFLOXACIN 400 MG BAYER [Suspect]
     Active Substance: MOXIFLOXACIN
     Indication: OSTEOMYELITIS
     Route: 048
     Dates: start: 20151008, end: 20151115
  2. PREMARIN VAGINAL [Concomitant]
     Active Substance: ESTROGENS, CONJUGATED
  3. RESTASIS [Concomitant]
     Active Substance: CYCLOSPORINE
  4. CLOBETESOL PROPIONATE OINTMENT [Concomitant]

REACTIONS (13)
  - Tendon pain [None]
  - Deafness [None]
  - Vitreous floaters [None]
  - Vertigo [None]
  - Insomnia [None]
  - Muscle twitching [None]
  - Malaise [None]
  - Ear discomfort [None]
  - Tinnitus [None]
  - Feeling abnormal [None]
  - Pain [None]
  - Dizziness [None]
  - Influenza like illness [None]

NARRATIVE: CASE EVENT DATE: 20151116
